FAERS Safety Report 6221017-0 (Version None)
Quarter: 2009Q2

REPORT INFORMATION
  Report Type: 
  Country: None (occurrence: None)
  Receive Date: 20090610
  Receipt Date: 20090526
  Transmission Date: 20091009
  Serious: Yes (Congenital Anomaly)
  Sender: FDA-Public Use
  Company Number: A0681612A

PATIENT
  Sex: Male
  Weight: 4.5 kg

DRUGS (3)
  1. PAXIL [Suspect]
     Indication: ANXIETY
  2. VITAMIN TAB [Concomitant]
  3. ZOLOFT [Concomitant]

REACTIONS (3)
  - CONGENITAL ANOMALY [None]
  - DRUG EXPOSURE DURING PREGNANCY [None]
  - FALLOT'S TETRALOGY [None]
